FAERS Safety Report 7951106-1 (Version None)
Quarter: 2011Q4

REPORT INFORMATION
  Report Type: 
  Country: None (occurrence: None)
  Receive Date: 20111201
  Receipt Date: 20111118
  Transmission Date: 20120403
  Serious: Yes (Other)
  Sender: FDA-Public Use
  Company Number: US-JNJFOC-20111108487

PATIENT
  Sex: Female
  Weight: 95.26 kg

DRUGS (6)
  1. IBUPROFEN [Concomitant]
     Indication: BACK PAIN
     Route: 065
  2. MONISTAT [Suspect]
     Indication: FUNGAL INFECTION
     Route: 067
     Dates: start: 20111110
  3. PRILOSEC [Concomitant]
     Indication: ANTACID THERAPY
     Route: 065
     Dates: start: 20060101
  4. MONISTAT [Suspect]
     Route: 067
  5. MONISTAT [Suspect]
     Route: 061
  6. MONISTAT [Suspect]
     Route: 061
     Dates: start: 20111110

REACTIONS (3)
  - VAGINAL ULCERATION [None]
  - VAGINAL MUCOSAL BLISTERING [None]
  - VULVOVAGINAL PAIN [None]
